FAERS Safety Report 16356317 (Version 1)
Quarter: 2019Q2

REPORT INFORMATION
  Report Type: Spontaneous
  Country: US (occurrence: US)
  Receive Date: 20190527
  Receipt Date: 20190527
  Transmission Date: 20190711
  Serious: No
  Sender: FDA-Public Use
  Company Number: US-DEXPHARM-20180441

PATIENT
  Sex: Female

DRUGS (2)
  1. ASPIRIN 81 [Concomitant]
     Active Substance: ASPIRIN
  2. ISOSORBIDE MONONITRATE. [Suspect]
     Active Substance: ISOSORBIDE MONONITRATE

REACTIONS (5)
  - Feeling abnormal [Unknown]
  - Malaise [Unknown]
  - Abnormal faeces [Unknown]
  - Vomiting [Unknown]
  - Palpitations [Unknown]
